FAERS Safety Report 17026195 (Version 2)
Quarter: 2019Q4

REPORT INFORMATION
  Report Type: Report from Study
  Country: US (occurrence: US)
  Receive Date: 20191113
  Receipt Date: 20191220
  Transmission Date: 20200122
  Serious: Yes (Other)
  Sender: FDA-Public Use
  Company Number: US-BAYER-2019-187462

PATIENT
  Age: 68 Year
  Sex: Male

DRUGS (1)
  1. VITRAKVI [Suspect]
     Active Substance: LAROTRECTINIB
     Indication: LUNG NEOPLASM MALIGNANT
     Dosage: 100 MG, BID
     Route: 048
     Dates: start: 20191007

REACTIONS (4)
  - Thrombocytopenia [Not Recovered/Not Resolved]
  - Dizziness [Recovered/Resolved]
  - Flatulence [None]
  - Eructation [None]

NARRATIVE: CASE EVENT DATE: 201910
